FAERS Safety Report 7933491-X (Version None)
Quarter: 2011Q4

REPORT INFORMATION
  Report Type: 
  Country: None (occurrence: None)
  Receive Date: 20111122
  Receipt Date: 20110907
  Transmission Date: 20120403
  Serious: No
  Sender: FDA-Public Use
  Company Number: US-BAYER-2011-089344

PATIENT
  Age: 67 Year
  Sex: Female
  Weight: 70 kg

DRUGS (7)
  1. ALEVE (CAPLET) [Suspect]
     Indication: SLEEP DISORDER THERAPY
     Dosage: 2 DF, QD
  2. CALCIUM CARBONATE [Concomitant]
  3. ALEVE (CAPLET) [Suspect]
     Indication: BACK PAIN
     Dosage: 1 DF, QD
  4. ALEVE (CAPLET) [Suspect]
     Dosage: 3 DF, QD
  5. UNKNOWN [Concomitant]
  6. UNKNOWN [Concomitant]
  7. UNKNOWN [Concomitant]

REACTIONS (1)
  - NO ADVERSE EVENT [None]
